FAERS Safety Report 10358317 (Version 2)
Quarter: 2014Q3

REPORT INFORMATION
  Report Type: Spontaneous
  Country: US (occurrence: US)
  Receive Date: 20140801
  Receipt Date: 20140801
  Transmission Date: 20150326
  Serious: Yes (Hospitalization, Disabling, Other)
  Sender: FDA-Public Use
  Company Number: US-009507513-2012SP005882

PATIENT
  Sex: Female
  Weight: 70.31 kg

DRUGS (3)
  1. NUVARING [Suspect]
     Active Substance: ETHINYL ESTRADIOL\ETONOGESTREL
     Dosage: UNK
     Dates: start: 200810
  2. NUVARING [Suspect]
     Active Substance: ETHINYL ESTRADIOL\ETONOGESTREL
     Indication: CONTRACEPTION
     Dosage: UNK
     Dates: start: 200810
  3. NUVARING [Suspect]
     Active Substance: ETHINYL ESTRADIOL\ETONOGESTREL
     Dosage: UNK
     Dates: end: 20090811

REACTIONS (12)
  - Pyrexia [Recovered/Resolved]
  - Muscle strain [Unknown]
  - Pulmonary embolism [Unknown]
  - Phlebitis [Unknown]
  - Mental disorder [Unknown]
  - Deep vein thrombosis [Recovered/Resolved]
  - Pulmonary infarction [Unknown]
  - Embolism venous [Unknown]
  - Pain in extremity [Unknown]
  - Bronchitis [Unknown]
  - Muscle spasms [Unknown]
  - Mitral valve disease [Unknown]

NARRATIVE: CASE EVENT DATE: 20081206
